FAERS Safety Report 5131758-4 (Version None)
Quarter: 2006Q4

REPORT INFORMATION
  Report Type: 
  Country: None (occurrence: None)
  Receive Date: 20061020
  Receipt Date: 20060314
  Transmission Date: 20070319
  Serious: Yes (Hospitalization)
  Sender: FDA-Public Use
  Company Number: CG-MERCK-0604USA02996

PATIENT
  Age: 40 Year
  Sex: Male
  Weight: 67 kg

DRUGS (1)
  1. STROMECTOL [Suspect]
     Route: 048

REACTIONS (5)
  - BACK PAIN [None]
  - DIARRHOEA [None]
  - ERYTHEMA OF EYELID [None]
  - HEADACHE [None]
  - PYREXIA [None]
